FAERS Safety Report 19172103 (Version 2)
Quarter: 2021Q2

REPORT INFORMATION
  Report Type: Spontaneous
  Country: US (occurrence: US)
  Receive Date: 20210423
  Receipt Date: 20210428
  Transmission Date: 20210717
  Serious: No
  Sender: FDA-Public Use
  Company Number: NVSC2021US092087

PATIENT
  Age: 91 Year
  Sex: Male

DRUGS (1)
  1. VOLTAREN EMULGEL [Suspect]
     Active Substance: DICLOFENAC DIETHYLAMINE
     Indication: PAIN
     Dosage: UNK
     Route: 065
     Dates: start: 20210420

REACTIONS (2)
  - Product administered at inappropriate site [Unknown]
  - Burning sensation [Unknown]

NARRATIVE: CASE EVENT DATE: 20210420
